FAERS Safety Report 8588745-3 (Version None)
Quarter: 2012Q3

REPORT INFORMATION
  Report Type: 
  Country: None (occurrence: None)
  Receive Date: 20120813
  Receipt Date: 20120806
  Transmission Date: 20120928
  Serious: Yes (Other)
  Sender: FDA-Public Use
  Company Number: JP-VERTEX PHARMACEUTICALS INC.-AE-2012-008223

PATIENT
  Age: 69 Year
  Sex: Female

DRUGS (20)
  1. ALLOPURINOL [Concomitant]
     Route: 048
     Dates: start: 20120209
  2. REBETOL [Concomitant]
     Route: 048
     Dates: start: 20120328, end: 20120419
  3. REBETOL [Concomitant]
     Route: 048
     Dates: start: 20120606, end: 20120626
  4. PEG-INTRON [Concomitant]
     Route: 058
     Dates: start: 20120530, end: 20120718
  5. REBETOL [Concomitant]
     Route: 048
     Dates: start: 20120523, end: 20120605
  6. REBETOL [Concomitant]
     Route: 048
     Dates: start: 20120627, end: 20120724
  7. MAGMITT [Concomitant]
     Route: 048
  8. REBETOL [Concomitant]
     Route: 048
     Dates: start: 20120502, end: 20120508
  9. LOSARTAN POTASSIUM AND HYDROCHLOROTHIAZIDE [Concomitant]
     Route: 048
  10. TELAVIC [Suspect]
     Route: 048
     Dates: start: 20120328, end: 20120417
  11. PEG-INTRON [Concomitant]
     Indication: HEPATITIS C
     Route: 058
     Dates: start: 20120130, end: 20120206
  12. PEG-INTRON [Concomitant]
     Route: 058
     Dates: start: 20120207, end: 20120214
  13. PEG-INTRON [Concomitant]
     Route: 058
     Dates: start: 20120215, end: 20120522
  14. TELAVIC [Suspect]
     Indication: HEPATITIS C
     Route: 048
     Dates: start: 20120130, end: 20120327
  15. REBETOL [Concomitant]
     Route: 048
     Dates: start: 20120509, end: 20120515
  16. TELAVIC [Suspect]
     Route: 048
     Dates: start: 20120418, end: 20120423
  17. REBETOL [Concomitant]
     Route: 048
     Dates: start: 20120315, end: 20120320
  18. AMLODIPINE [Concomitant]
     Route: 048
     Dates: end: 20120605
  19. RABEPRAZOLE SODIUM [Concomitant]
     Route: 048
  20. REBETOL [Concomitant]
     Indication: HEPATITIS C
     Route: 048
     Dates: start: 20120130, end: 20120314

REACTIONS (2)
  - ANAEMIA [None]
  - LOSS OF CONSCIOUSNESS [None]
